FAERS Safety Report 5637985-1 (Version None)
Quarter: 2008Q1

REPORT INFORMATION
  Report Type: 
  Country: None (occurrence: None)
  Receive Date: 20080222
  Receipt Date: 20080222
  Transmission Date: 20080703
  Serious: Yes (Hospitalization)
  Sender: FDA-Public Use
  Company Number: None

PATIENT
  Sex: Male
  Weight: 102.2 kg

DRUGS (1)
  1. TEMOZOLOMIDE [Suspect]
     Dosage: 4620 MG

REACTIONS (8)
  - ABDOMINAL PAIN [None]
  - CONVULSION [None]
  - DRUG INTERACTION [None]
  - GLIOBLASTOMA MULTIFORME [None]
  - MALIGNANT NEOPLASM PROGRESSION [None]
  - PROCEDURAL COMPLICATION [None]
  - PULMONARY EMBOLISM [None]
  - STATUS EPILEPTICUS [None]
